FAERS Safety Report 8265477-2 (Version None)
Quarter: 2012Q2

REPORT INFORMATION
  Report Type: 
  Country: None (occurrence: None)
  Receive Date: 20120406
  Receipt Date: 20120402
  Transmission Date: 20120825
  Serious: Yes (Other)
  Sender: FDA-Public Use
  Company Number: US-PFIZER INC-2012083428

PATIENT
  Sex: Male
  Weight: 70.295 kg

DRUGS (5)
  1. INSPRA [Concomitant]
     Dosage: 50 MG, UNK
  2. REVATIO [Suspect]
     Indication: PULMONARY HYPERTENSION
     Dosage: 20 MG, 2X/DAY
     Route: 048
     Dates: start: 20120302, end: 20120307
  3. METOPROLOL [Concomitant]
     Dosage: 50 MG, UNK
  4. DEXLANSOPRAZOLE [Concomitant]
     Dosage: 60 MG, UNK
  5. WARFARIN [Concomitant]
     Dosage: UNK

REACTIONS (6)
  - ABDOMINAL PAIN UPPER [None]
  - GASTRIC DISORDER [None]
  - PULMONARY OEDEMA [None]
  - LOCALISED OEDEMA [None]
  - INSOMNIA [None]
  - POLLAKIURIA [None]
